FAERS Safety Report 7445138-X (Version None)
Quarter: 2011Q2

REPORT INFORMATION
  Report Type: 
  Country: None (occurrence: None)
  Receive Date: 20110429
  Receipt Date: 20110425
  Transmission Date: 20111010
  Serious: Yes (Other)
  Sender: FDA-Public Use
  Company Number: US-PFIZER INC-2011058295

PATIENT
  Sex: Male
  Weight: 95.238 kg

DRUGS (4)
  1. NEURONTIN [Suspect]
  2. NEURONTIN [Suspect]
     Indication: NEUROPATHY PERIPHERAL
     Dosage: UNK
  3. NEXIUM [Concomitant]
     Indication: GASTROOESOPHAGEAL REFLUX DISEASE
     Dosage: UNK
  4. ACETYLSALICYLIC ACID [Concomitant]
     Dosage: UNK

REACTIONS (4)
  - PAIN IN EXTREMITY [None]
  - QUALITY OF LIFE DECREASED [None]
  - NON-HODGKIN'S LYMPHOMA [None]
  - COLON CANCER [None]
